FAERS Safety Report 13456334 (Version 3)
Quarter: 2017Q3

REPORT INFORMATION
  Report Type: Report from Study
  Country: FR (occurrence: FR)
  Receive Date: 20170418
  Receipt Date: 20170803
  Transmission Date: 20171127
  Serious: Yes (Other)
  Sender: FDA-Public Use
  Company Number: FR-PFIZER INC-2017166831

PATIENT
  Age: 32 Year
  Sex: Female
  Weight: 63 kg

DRUGS (2)
  1. MIFEGYNE [Suspect]
     Active Substance: MIFEPRISTONE
     Indication: ABORTION INDUCED
     Dosage: 600 MG, UNK (TOTAL)
     Route: 048
     Dates: start: 19930307, end: 19930307
  2. MISOPROSTOL. [Suspect]
     Active Substance: MISOPROSTOL
     Indication: ABORTION INDUCED
     Dosage: 400 UG, UNK (TOTAL)
     Route: 048
     Dates: start: 19930309, end: 19930309

REACTIONS (1)
  - Endometritis [Recovered/Resolved]

NARRATIVE: CASE EVENT DATE: 19930321
